FAERS Safety Report 7105195-7 (Version None)
Quarter: 2010Q4

REPORT INFORMATION
  Report Type: 
  Country: None (occurrence: None)
  Receive Date: 20101116
  Receipt Date: 20100324
  Transmission Date: 20110411
  Serious: Yes (Hospitalization, Other)
  Sender: FDA-Public Use
  Company Number: US-BAYER-201010220NA

PATIENT
  Age: 21 Year
  Sex: Female
  Weight: 64 kg

DRUGS (4)
  1. YASMIN [Suspect]
     Indication: PRODUCT USED FOR UNKNOWN INDICATION
     Route: 048
     Dates: start: 20030101, end: 20030401
  2. ALLEGRA [Concomitant]
  3. ALBUTEROL [Concomitant]
  4. INTAL [Concomitant]

REACTIONS (15)
  - ABDOMINAL PAIN LOWER [None]
  - CHILLS [None]
  - DIVERTICULITIS MECKEL'S [None]
  - DYSPEPSIA [None]
  - DYSPNOEA [None]
  - FEELING COLD [None]
  - MUSCLE SPASMS [None]
  - MUSCLE TIGHTNESS [None]
  - MUSCULOSKELETAL STIFFNESS [None]
  - OEDEMA PERIPHERAL [None]
  - PAIN IN EXTREMITY [None]
  - PLEURITIC PAIN [None]
  - PULMONARY EMBOLISM [None]
  - SPINAL CORD NEOPLASM [None]
  - THROMBOPHLEBITIS SUPERFICIAL [None]
